FAERS Safety Report 10340732 (Version 1)
Quarter: 2014Q3

REPORT INFORMATION
  Report Type: Spontaneous
  Country: FR (occurrence: FR)
  Receive Date: 20140724
  Receipt Date: 20140724
  Transmission Date: 20150326
  Serious: Yes (Hospitalization)
  Sender: FDA-Public Use
  Company Number: FR-PFIZER INC-2014203295

PATIENT
  Age: 57 Year
  Sex: Female

DRUGS (14)
  1. NEORAL [Concomitant]
     Active Substance: CYCLOSPORINE
     Dosage: 25X2
     Dates: start: 20140626
  2. ALLOPURINOL. [Concomitant]
     Active Substance: ALLOPURINOL
     Dosage: 200X1
     Dates: start: 201402
  3. NEORAL [Concomitant]
     Active Substance: CYCLOSPORINE
     Dosage: 50 X2
     Dates: start: 20140519
  4. NEORAL [Concomitant]
     Active Substance: CYCLOSPORINE
     Dosage: 50+25
     Dates: start: 20140603
  5. CORTANCYL [Concomitant]
     Active Substance: PREDNISONE
     Dosage: 5X1
     Dates: start: 2009
  6. ACTONEL [Concomitant]
     Active Substance: RISEDRONATE SODIUM
     Dosage: ONCE WEEKLY
     Dates: start: 201302
  7. CELLCEPT [Concomitant]
     Active Substance: MYCOPHENOLATE MOFETIL\MYCOPHENOLATE MOFETIL HYDROCHLORIDE
     Dosage: 750 X2
     Dates: start: 2009
  8. AMLOR [Concomitant]
     Active Substance: AMLODIPINE BESYLATE
     Dosage: 5X1
     Dates: start: 201108
  9. NEORAL [Concomitant]
     Active Substance: CYCLOSPORINE
     Dosage: UNK
     Dates: start: 2009
  10. DETENSIEL [Concomitant]
     Active Substance: BISOPROLOL FUMARATE
     Dosage: 10X1
     Dates: start: 2010
  11. UVEDOSE [Concomitant]
     Active Substance: CHOLECALCIFEROL
     Dosage: 1 DF, EVERY 3 MONTHS
     Dates: start: 201302
  12. RAPAMUNE [Suspect]
     Active Substance: SIROLIMUS
     Indication: RENAL TRANSPLANT
     Dosage: 2 MG, 1X/DAY
     Route: 048
     Dates: start: 20140502
  13. NEORAL [Concomitant]
     Active Substance: CYCLOSPORINE
     Dosage: 70+50
     Dates: start: 201404
  14. HYDROCHLOROTHIAZIDE\VALSARTAN [Concomitant]
     Active Substance: HYDROCHLOROTHIAZIDE\VALSARTAN
     Dosage: 160/25X1
     Dates: start: 201108

REACTIONS (4)
  - Diarrhoea [Recovering/Resolving]
  - Gastroenteritis [Unknown]
  - Hypokalaemia [Recovered/Resolved]
  - Vomiting [Unknown]

NARRATIVE: CASE EVENT DATE: 2014
